FAERS Safety Report 16197431 (Version 1)
Quarter: 2019Q2

REPORT INFORMATION
  Report Type: Spontaneous
  Country: FR (occurrence: FR)
  Receive Date: 20190415
  Receipt Date: 20190415
  Transmission Date: 20190711
  Serious: Yes (Hospitalization, Other)
  Sender: FDA-Public Use
  Company Number: FR-BAYER-FR-2005-023450

PATIENT
  Age: 38 Year
  Sex: Female

DRUGS (3)
  1. BETAFERON [Suspect]
     Active Substance: INTERFERON BETA-1B
     Indication: MULTIPLE SCLEROSIS
     Dosage: 8 MIU, TIW
     Route: 058
     Dates: start: 20001205
  2. BACLOFEN. [Concomitant]
     Active Substance: BACLOFEN
     Indication: MUSCLE SPASTICITY
     Dosage: UNK, UNK
     Route: 048
  3. LEVOTHYROXINE SODIUM. [Concomitant]
     Active Substance: LEVOTHYROXINE SODIUM
     Indication: HORMONE REPLACEMENT THERAPY
     Dosage: UNK, UNK [DAILY DOSE: 150 ?G]
     Route: 048
     Dates: start: 20050810

REACTIONS (2)
  - Acute kidney injury [Recovered/Resolved with Sequelae]
  - Retroperitoneal fibrosis [Recovered/Resolved with Sequelae]

NARRATIVE: CASE EVENT DATE: 20040615
